FAERS Safety Report 9322340 (Version 1)
Quarter: 2013Q2

REPORT INFORMATION
  Report Type: Spontaneous
  Country: FR (occurrence: None)
  Receive Date: 20130529
  Receipt Date: 20130529
  Transmission Date: 20140414
  Serious: Yes (Other)
  Sender: FDA-Public Use
  Company Number: 2013FR001614

PATIENT
  Sex: 0

DRUGS (1)
  1. PONATINIB (AP24534) TABLET [Suspect]
     Route: 048
     Dates: start: 20130115

REACTIONS (1)
  - Venous thrombosis [None]
